FAERS Safety Report 4979195-7 (Version None)
Quarter: 2006Q2

REPORT INFORMATION
  Report Type: 
  Country: None (occurrence: None)
  Receive Date: 20060421
  Receipt Date: 20060307
  Transmission Date: 20061013
  Serious: Yes (Other)
  Sender: FDA-Public Use
  Company Number: GB-GLAXOSMITHKLINE-B0414712A

PATIENT
  Sex: Female

DRUGS (4)
  1. AVANDIA [Suspect]
     Route: 048
  2. METFORMIN [Concomitant]
  3. ENALAPRIL MALEATE [Concomitant]
  4. LIPITOR [Concomitant]

REACTIONS (2)
  - CATARACT [None]
  - NIGHT BLINDNESS [None]
